FAERS Safety Report 15890672 (Version 1)
Quarter: 2019Q1

REPORT INFORMATION
  Report Type: Spontaneous
  Country: US (occurrence: US)
  Receive Date: 20190130
  Receipt Date: 20190130
  Transmission Date: 20190417
  Serious: Yes (Other)
  Sender: FDA-Public Use
  Company Number: US-FOUNDATIONCONSUMERHC-2019-US-001796

PATIENT
  Age: 28 Year
  Sex: Female
  Weight: 111.13 kg

DRUGS (1)
  1. PLAN B ONE-STEP [Suspect]
     Active Substance: LEVONORGESTREL
     Indication: POST COITAL CONTRACEPTION
     Dosage: 1.5 MG
     Route: 048
     Dates: start: 20181215, end: 20181215

REACTIONS (9)
  - Human chorionic gonadotropin decreased [Unknown]
  - Nausea [Unknown]
  - Vomiting [Unknown]
  - Drug ineffective [Unknown]
  - Dysmenorrhoea [Unknown]
  - Vaginal haemorrhage [Unknown]
  - Galactorrhoea [Unknown]
  - Pregnancy after post coital contraception [Unknown]
  - Abortion spontaneous [Unknown]

NARRATIVE: CASE EVENT DATE: 20181215
